FAERS Safety Report 8840845 (Version 16)
Quarter: 2016Q1

REPORT INFORMATION
  Report Type: Report from Study
  Country: CA (occurrence: CA)
  Receive Date: 20121015
  Receipt Date: 20160118
  Transmission Date: 20160526
  Serious: Yes (Hospitalization)
  Sender: FDA-Public Use
  Company Number: PHHY2011CA87916

PATIENT
  Age: 59 Year
  Sex: Female

DRUGS (6)
  1. SANDOSTATIN [Suspect]
     Active Substance: OCTREOTIDE ACETATE
     Indication: PANCREATIC ISLETS HYPERPLASIA
     Dosage: UNK UNK, BID
     Route: 058
     Dates: start: 20110411, end: 201105
  2. SANDOSTATIN LAR DEPOT [Suspect]
     Active Substance: OCTREOTIDE ACETATE
     Dosage: 30 MG, QMO
     Route: 030
     Dates: start: 20121024
  3. PROLIA [Suspect]
     Active Substance: DENOSUMAB
     Indication: OSTEOPOROSIS
     Route: 065
  4. SANDOSTATIN LAR DEPOT [Suspect]
     Active Substance: OCTREOTIDE ACETATE
     Indication: PANCREATIC ISLETS HYPERPLASIA
     Dosage: 30 MG, QMO
     Route: 030
     Dates: start: 20110513, end: 20120906
  5. SANDOSTATIN LAR DEPOT [Suspect]
     Active Substance: OCTREOTIDE ACETATE
     Dosage: UNK
     Route: 030
     Dates: start: 20140827
  6. SANDOSTATIN LAR DEPOT [Suspect]
     Active Substance: OCTREOTIDE ACETATE
     Dosage: 30 MG, QMO
     Route: 030

REACTIONS (18)
  - Sleep disorder [Unknown]
  - Blood pressure increased [Unknown]
  - Hypoglycaemia [Not Recovered/Not Resolved]
  - Clostridium difficile infection [Unknown]
  - Metabolic disorder [Unknown]
  - Gait disturbance [Unknown]
  - Pain in extremity [Unknown]
  - Pancreatic disorder [Unknown]
  - Fall [Unknown]
  - Musculoskeletal pain [Unknown]
  - Product use issue [Unknown]
  - Hypovitaminosis [Unknown]
  - Bone deformity [Unknown]
  - General physical health deterioration [Unknown]
  - Anaemia [Unknown]
  - Coma [Unknown]
  - Fatigue [Unknown]
  - Breast pain [Unknown]

NARRATIVE: CASE EVENT DATE: 20140818
